FAERS Safety Report 7153569-0 (Version None)
Quarter: 2010Q4

REPORT INFORMATION
  Report Type: 
  Country: None (occurrence: None)
  Receive Date: 20101208
  Receipt Date: 20101208
  Transmission Date: 20110411
  Serious: Yes (Death)
  Sender: FDA-Public Use
  Company Number: None

PATIENT
  Age: 74 Year
  Sex: Male

DRUGS (9)
  1. REVLIMID [Suspect]
     Indication: MULTIPLE MYELOMA
     Dosage: 15MG DAILY 21D/28D ORALLY
     Route: 048
     Dates: start: 20090601, end: 20091201
  2. DEXAMETHASONE [Concomitant]
  3. GLIPIZIDE [Concomitant]
  4. FINASTERIDE [Concomitant]
  5. GEMFIBROZIL [Concomitant]
  6. K-TAB [Concomitant]
  7. PRAVASTATIN [Concomitant]
  8. LANTUS [Concomitant]
  9. COZAAR [Concomitant]

REACTIONS (1)
  - MALIGNANT NEOPLASM PROGRESSION [None]
